FAERS Safety Report 9353372 (Version 1)
Quarter: 2013Q2

REPORT INFORMATION
  Report Type: Report from Study
  Country: NO (occurrence: NO)
  Receive Date: 20130618
  Receipt Date: 20130618
  Transmission Date: 20140414
  Serious: Yes (Other)
  Sender: FDA-Public Use
  Company Number: NO-BRISTOL-MYERS SQUIBB COMPANY-19009745

PATIENT
  Sex: 0

DRUGS (1)
  1. ABATACEPT [Suspect]
     Dates: start: 20101014, end: 20101014

REACTIONS (1)
  - Metastasis [Unknown]
